FAERS Safety Report 11762722 (Version 2)
Quarter: 2015Q4

REPORT INFORMATION
  Report Type: Report from Study
  Country: DE (occurrence: DE)
  Receive Date: 20151120
  Receipt Date: 20151124
  Transmission Date: 20160304
  Serious: Yes (Hospitalization)
  Sender: FDA-Public Use
  Company Number: DE-TEVA-611125GER

PATIENT
  Age: 76 Year
  Sex: Female

DRUGS (5)
  1. AMITRIPTYLINE [Suspect]
     Active Substance: AMITRIPTYLINE
     Indication: DEEP VEIN THROMBOSIS
     Route: 065
  2. TENECTEPLASE [Suspect]
     Active Substance: TENECTEPLASE
     Route: 065
  3. BETAHISTINE [Concomitant]
     Active Substance: BETAHISTINE
     Route: 065
  4. HEPARIN [Suspect]
     Active Substance: HEPARIN SODIUM
     Route: 065
  5. ASPIRIN. [Suspect]
     Active Substance: ASPIRIN
     Indication: DEEP VEIN THROMBOSIS
     Route: 065

REACTIONS (3)
  - Haemorrhage intracranial [Recovering/Resolving]
  - Hemiparesis [Recovering/Resolving]
  - Paraesthesia [Recovering/Resolving]
